FAERS Safety Report 5288058-1 (Version None)
Quarter: 2007Q2

REPORT INFORMATION
  Report Type: 
  Country: None (occurrence: None)
  Receive Date: 20070405
  Receipt Date: 20070402
  Transmission Date: 20071010
  Serious: Yes (Hospitalization, Other)
  Sender: FDA-Public Use
  Company Number: US-BRISTOL-MYERS SQUIBB COMPANY-13734926

PATIENT
  Age: 15 Year
  Sex: Female
  Weight: 62 kg

DRUGS (7)
  1. CETUXIMAB [Suspect]
     Dosage: START 12-JUL-2006, INTERRUPTED ON 11-AUG-2006
     Route: 042
     Dates: start: 20060807, end: 20060807
  2. IRINOTECAN HCL [Suspect]
     Dosage: START 12-JUL-2006, INTERRUPTED ON 11-AUG-2006
     Route: 042
     Dates: start: 20060808, end: 20060808
  3. ALOXI [Concomitant]
     Indication: NAUSEA
  4. COLACE [Concomitant]
     Indication: CONSTIPATION
     Route: 048
  5. BACLOFEN [Concomitant]
     Indication: MUSCLE SPASMS
     Route: 048
  6. LYRICA [Concomitant]
     Indication: NEURALGIA
     Route: 048
  7. LUPRON [Concomitant]
     Indication: AMENORRHOEA
     Route: 030

REACTIONS (9)
  - ABDOMINAL PAIN [None]
  - CHILLS [None]
  - DIARRHOEA [None]
  - HYPOTENSION [None]
  - LETHARGY [None]
  - LYMPHOPENIA [None]
  - NAUSEA [None]
  - PYREXIA [None]
  - VAGINAL HAEMORRHAGE [None]
